FAERS Safety Report 21568316 (Version 1)
Quarter: 2022Q4

REPORT INFORMATION
  Report Type: Spontaneous
  Country: US (occurrence: US)
  Receive Date: 20221108
  Receipt Date: 20221108
  Transmission Date: 20230113
  Serious: No
  Sender: FDA-Public Use
  Company Number: US-MYLANLABS-2022M1086917

PATIENT
  Sex: Female

DRUGS (2)
  1. ESTRADIOL [Suspect]
     Active Substance: ESTRADIOL
     Indication: Hormone level abnormal
     Dosage: 1 GRAM, 3XW (EVERY OTHER DAY 1G 3X A WEEK )
     Route: 067
     Dates: start: 202206
  2. ESTRADIOL [Suspect]
     Active Substance: ESTRADIOL
     Dosage: 0.5 DOSAGE FORM, QOD
     Route: 067

REACTIONS (4)
  - Product packaging quantity issue [Unknown]
  - Product quality issue [Unknown]
  - Underdose [Unknown]
  - Intentional product misuse [Unknown]
